FAERS Safety Report 5082943-1 (Version None)
Quarter: 2006Q3

REPORT INFORMATION
  Report Type: 
  Country: None (occurrence: None)
  Receive Date: 20060817
  Receipt Date: 20060810
  Transmission Date: 20061208
  Serious: Yes (Other)
  Sender: FDA-Public Use
  Company Number: US-MERCK-0608USA02462

PATIENT
  Age: 17 Year
  Sex: Female
  Weight: 37 kg

DRUGS (6)
  1. SINGULAIR [Suspect]
     Route: 048
     Dates: start: 20050101
  2. BUDESONIDE [Concomitant]
     Route: 065
  3. ALBUTEROL [Concomitant]
     Route: 065
  4. COLACE [Concomitant]
     Route: 065
  5. SENOKOT [Concomitant]
     Route: 065
  6. WARFARIN [Suspect]
     Route: 065
     Dates: start: 20050722

REACTIONS (4)
  - DEEP VEIN THROMBOSIS [None]
  - DRUG INTERACTION [None]
  - INTERNATIONAL NORMALISED RATIO INCREASED [None]
  - PULMONARY EMBOLISM [None]
